FAERS Safety Report 22192420 (Version 16)
Quarter: 2025Q4

REPORT INFORMATION
  Report Type: Report from Study
  Country: CA (occurrence: CA)
  Receive Date: 20230410
  Receipt Date: 20251201
  Transmission Date: 20260118
  Serious: Yes (Hospitalization, Other)
  Sender: TAKEDA
  Company Number: CA-TAKEDA-2023TUS035360

PATIENT
  Age: 56 Year
  Sex: Female

DRUGS (28)
  1. VEDOLIZUMAB [Suspect]
     Active Substance: VEDOLIZUMAB
     Indication: Crohn^s disease
     Dosage: 300 MILLIGRAM
  2. VEDOLIZUMAB [Suspect]
     Active Substance: VEDOLIZUMAB
     Dosage: 300 MILLIGRAM, Q4WEEKS
     Dates: start: 20230207
  3. VEDOLIZUMAB [Suspect]
     Active Substance: VEDOLIZUMAB
     Dosage: 300 MILLIGRAM, Q4WEEKS
  4. VEDOLIZUMAB [Suspect]
     Active Substance: VEDOLIZUMAB
     Dosage: 300 MILLIGRAM, Q4WEEKS
  5. VEDOLIZUMAB [Suspect]
     Active Substance: VEDOLIZUMAB
     Dosage: 300 MILLIGRAM, Q4WEEKS
  6. VEDOLIZUMAB [Suspect]
     Active Substance: VEDOLIZUMAB
     Dosage: 300 MILLIGRAM, Q4WEEKS
  7. VEDOLIZUMAB [Suspect]
     Active Substance: VEDOLIZUMAB
     Dosage: 300 MILLIGRAM, Q4WEEKS
  8. VEDOLIZUMAB [Suspect]
     Active Substance: VEDOLIZUMAB
     Dosage: 300 MILLIGRAM, Q4WEEKS
  9. VEDOLIZUMAB [Suspect]
     Active Substance: VEDOLIZUMAB
     Dosage: 300 MILLIGRAM, Q4WEEKS
  10. PANTOPRAZOLE SODIUM [Suspect]
     Active Substance: PANTOPRAZOLE SODIUM
     Indication: Product used for unknown indication
     Dosage: UNK
  11. LACTATED RINGERS SOLUTION [Concomitant]
     Active Substance: CALCIUM CHLORIDE\POTASSIUM CHLORIDE\SODIUM CHLORIDE\SODIUM LACTATE
     Dosage: UNK UNK, 1/WEEK
  12. MIRTAZAPINE [Concomitant]
     Active Substance: MIRTAZAPINE
     Dosage: 30 MILLIGRAM
  13. DILAUDID [Concomitant]
     Active Substance: HYDROMORPHONE HYDROCHLORIDE
     Dosage: UNK
  14. TYLENOL WITH CODEINE [Concomitant]
     Active Substance: ACETAMINOPHEN\CODEINE PHOSPHATE
     Dosage: UNK
  15. GRAVOL [Concomitant]
     Active Substance: DIMENHYDRINATE
     Dosage: UNK
  16. Reactine [Concomitant]
     Dosage: UNK
  17. SYNTHROID [Concomitant]
     Active Substance: LEVOTHYROXINE SODIUM
     Dosage: UNK
  18. METOPROLOL [Concomitant]
     Active Substance: METOPROLOL
     Dosage: UNK
  19. PREDNISONE [Concomitant]
     Active Substance: PREDNISONE
     Dosage: UNK
  20. MELATONIN [Concomitant]
     Active Substance: MELATONIN
     Dosage: UNK
  21. VITAMIN K [Concomitant]
     Active Substance: PHYTONADIONE
     Dosage: UNK
  22. WARFARIN [Concomitant]
     Active Substance: WARFARIN
     Dosage: UNK
  23. ZOPICLONE [Concomitant]
     Active Substance: ZOPICLONE
     Dosage: UNK
  24. AMITRIPTYLINE [Concomitant]
     Active Substance: AMITRIPTYLINE
     Dosage: UNK
  25. FLUNARIZINE [Concomitant]
     Active Substance: FLUNARIZINE
     Dosage: UNK
  26. GABAPENTIN [Concomitant]
     Active Substance: GABAPENTIN
     Dosage: UNK
  27. THEANINE [Concomitant]
     Active Substance: THEANINE
     Dosage: UNK
  28. ATIVAN [Concomitant]
     Active Substance: LORAZEPAM
     Dosage: UNK

REACTIONS (15)
  - Crohn^s disease [Not Recovered/Not Resolved]
  - Haemorrhage [Recovering/Resolving]
  - Adrenal insufficiency [Recovering/Resolving]
  - Intestinal obstruction [Recovering/Resolving]
  - Off label use [Unknown]
  - Feeding disorder [Recovering/Resolving]
  - Diarrhoea [Recovering/Resolving]
  - Pain [Recovering/Resolving]
  - Myalgia [Recovering/Resolving]
  - Drug ineffective [Unknown]
  - Malaise [Unknown]
  - Oral candidiasis [Unknown]
  - Chills [Recovering/Resolving]
  - Nasopharyngitis [Unknown]
  - Pyrexia [Recovering/Resolving]

NARRATIVE: CASE EVENT DATE: 20230207
